FAERS Safety Report 11692611 (Version 1)
Quarter: 2015Q4

REPORT INFORMATION
  Report Type: Spontaneous
  Country: US (occurrence: None)
  Receive Date: 20151102
  Receipt Date: 20151102
  Transmission Date: 20160304
  Serious: Yes (Hospitalization)
  Sender: FDA-Public Use
  Company Number: None

PATIENT
  Age: 75 Year
  Sex: Male
  Weight: 81 kg

DRUGS (2)
  1. CARBOPLATIN. [Suspect]
     Active Substance: CARBOPLATIN
     Dates: end: 20151019
  2. TAXOL [Suspect]
     Active Substance: PACLITAXEL
     Dates: end: 20151019

REACTIONS (10)
  - Blood calcium decreased [None]
  - Atelectasis [None]
  - White blood cell count decreased [None]
  - Haemoglobin decreased [None]
  - Pulmonary fibrosis [None]
  - Blood potassium decreased [None]
  - Pleural effusion [None]
  - Pneumonia [None]
  - Lymphocyte count decreased [None]
  - Oesophagitis [None]

NARRATIVE: CASE EVENT DATE: 20151028
